FAERS Safety Report 9799964 (Version 1)
Quarter: 2014Q1

REPORT INFORMATION
  Report Type: Spontaneous
  Country: US (occurrence: US)
  Receive Date: 20140106
  Receipt Date: 20140106
  Transmission Date: 20141002
  Serious: No
  Sender: FDA-Public Use
  Company Number: US-GILEAD-2010-0030301

PATIENT
  Sex: Female
  Weight: 77.11 kg

DRUGS (13)
  1. LETAIRIS [Suspect]
     Indication: PULMONARY ARTERIAL HYPERTENSION
     Route: 048
     Dates: start: 20091117
  2. COUMADIN [Concomitant]
  3. LASIX [Concomitant]
  4. BIAXIN [Concomitant]
  5. ZYFLO [Concomitant]
  6. ALLEGRA [Concomitant]
  7. CARAFATE [Concomitant]
  8. TAMBOCOR [Concomitant]
  9. FLONASE [Concomitant]
  10. CRESTOR [Concomitant]
  11. SPIRIVA [Concomitant]
  12. KAPIDEX [Concomitant]
  13. POTASSIUM CHLORIDE [Concomitant]

REACTIONS (1)
  - Adverse drug reaction [Unknown]
